FAERS Safety Report 4782197-7 (Version None)
Quarter: 2005Q3

REPORT INFORMATION
  Report Type: 
  Country: None (occurrence: None)
  Receive Date: 20050927
  Receipt Date: 20050823
  Transmission Date: 20060218
  Serious: No
  Sender: FDA-Public Use
  Company Number: USA0508106451

PATIENT
  Sex: Female

DRUGS (2)
  1. STRATTERA [Suspect]
     Dosage: 60 MG
     Dates: start: 20050701, end: 20050712
  2. PAXIL [Concomitant]

REACTIONS (1)
  - FORMICATION [None]
